FAERS Safety Report 7402910-X (Version None)
Quarter: 2011Q2

REPORT INFORMATION
  Report Type: 
  Country: None (occurrence: None)
  Receive Date: 20110408
  Receipt Date: 20110328
  Transmission Date: 20111010
  Serious: Yes (Death, Other)
  Sender: FDA-Public Use
  Company Number: SK-ELI_LILLY_AND_COMPANY-SK201103008887

PATIENT
  Age: 84 Year
  Sex: Female

DRUGS (2)
  1. VITACALCIN [Concomitant]
  2. FORTEO [Suspect]
     Indication: OSTEOPOROSIS
     Dosage: 20 UG, QD
     Dates: start: 20091210

REACTIONS (1)
  - CEREBROVASCULAR ACCIDENT [None]
